FAERS Safety Report 8031224-2 (Version None)
Quarter: 2012Q1

REPORT INFORMATION
  Report Type: 
  Country: None (occurrence: None)
  Receive Date: 20120109
  Receipt Date: 20111230
  Transmission Date: 20120608
  Serious: Yes (Hospitalization)
  Sender: FDA-Public Use
  Company Number: ZA-ABBOTT-12P-143-0889544-00

PATIENT
  Sex: Female

DRUGS (2)
  1. HUMIRA [Suspect]
     Indication: CROHN'S DISEASE
     Route: 058
     Dates: start: 20110501
  2. CORTISONE ACETATE [Concomitant]
     Indication: PRODUCT USED FOR UNKNOWN INDICATION
     Route: 048
     Dates: end: 20101201

REACTIONS (10)
  - HEADACHE [None]
  - DRUG EFFECT DECREASED [None]
  - WEIGHT DECREASED [None]
  - HEART RATE DECREASED [None]
  - CYSTITIS ESCHERICHIA [None]
  - PYREXIA [None]
  - MALAISE [None]
  - PROCTALGIA [None]
  - SKIN REACTION [None]
  - CROHN'S DISEASE [None]
